FAERS Safety Report 8989192 (Version 1)
Quarter: 2012Q4

REPORT INFORMATION
  Report Type: 
  Country: CA (occurrence: CA)
  Receive Date: 20121228
  Receipt Date: 20121228
  Transmission Date: 20130627
  Serious: Yes (Other)
  Sender: FDA-Public Use
  Company Number: PHHY2012CA120511

PATIENT
  Age: 64 Year
  Sex: Female

DRUGS (3)
  1. ACLASTA [Suspect]
     Indication: OSTEOPOROSIS
     Dosage: UNK
     Route: 042
     Dates: start: 20090330
  2. ACLASTA [Suspect]
     Dosage: UNK
     Route: 042
     Dates: start: 20100615
  3. ACLASTA [Suspect]
     Dosage: UNK
     Route: 042
     Dates: start: 20120224

REACTIONS (1)
  - Compression fracture [Unknown]
